FAERS Safety Report 4803802-2 (Version None)
Quarter: 2005Q3

REPORT INFORMATION
  Report Type: 
  Country: None (occurrence: None)
  Receive Date: 20050920
  Receipt Date: 20050815
  Transmission Date: 20060218
  Serious: No
  Sender: FDA-Public Use
  Company Number: US-YAMANOUCHI-YPA20050429

PATIENT
  Age: 82 Year
  Sex: Female

DRUGS (10)
  1. VESICARE [Suspect]
     Indication: INCONTINENCE
     Dosage: 5 MG QD PO
     Route: 048
     Dates: start: 20050630
  2. RAZADYNE [Concomitant]
  3. GRIS-PEG [Concomitant]
  4. EVISTA [Concomitant]
  5. ZOLOFT [Concomitant]
  6. CENTRUM SILVER [Concomitant]
  7. VITAMINS [Concomitant]
  8. LOW-DOSE ASPIRIN [Concomitant]
  9. CALCIUM GLUCONATE [Concomitant]
  10. EYE-CAP [Concomitant]

REACTIONS (1)
  - CONSTIPATION [None]
